FAERS Safety Report 4313855-6 (Version None)
Quarter: 2004Q1

REPORT INFORMATION
  Report Type: 
  Country: None (occurrence: None)
  Receive Date: 20040308
  Receipt Date: 20030603
  Transmission Date: 20041129
  Serious: Yes (Life-Threatening, Hospitalization)
  Sender: FDA-Public Use
  Company Number: WAES 0306FRA00008

PATIENT
  Age: 65 Year
  Sex: Male

DRUGS (9)
  1. BETAMETHASONE [Suspect]
     Indication: ASTHMA
     Dates: end: 20030228
  2. FLUTICASONE PROPIONATE AND SALMETEROL XINAFOATE [Concomitant]
     Indication: ASTHMA
  3. GLIMEPIRIDE [Concomitant]
     Indication: DIABETES MELLITUS
  4. IPRATROPIUM BROMIDE [Concomitant]
  5. METHYLPREDNISOLONE SODIUM SUCCINATE [Suspect]
     Dates: start: 20030311, end: 20030311
  6. PREDNISONE [Suspect]
     Route: 048
     Dates: start: 20030315
  7. RILMENIDENE [Concomitant]
  8. VIOXX [Suspect]
     Route: 048
     Dates: start: 20030301
  9. TERBUTALINE SULFATE [Concomitant]
     Indication: ASTHMA

REACTIONS (17)
  - ALLERGIC GRANULOMATOUS ANGIITIS [None]
  - ANTINUCLEAR ANTIBODY POSITIVE [None]
  - BACK PAIN [None]
  - CONFUSIONAL STATE [None]
  - CSF PROTEIN INCREASED [None]
  - CSF TEST ABNORMAL [None]
  - HYPEREOSINOPHILIC SYNDROME [None]
  - INTERVERTEBRAL DISCITIS [None]
  - LOCALISED INFECTION [None]
  - QUADRIPLEGIA [None]
  - RESPIRATORY DISTRESS [None]
  - SCIATICA [None]
  - SEPSIS [None]
  - SPONDYLITIS [None]
  - STAPHYLOCOCCAL SEPSIS [None]
  - SYSTEMIC INFLAMMATORY RESPONSE SYNDROME [None]
  - TENOSYNOVITIS [None]
